FAERS Safety Report 21877164 (Version 1)
Quarter: 2023Q1

REPORT INFORMATION
  Report Type: Report from Study
  Country: US (occurrence: US)
  Receive Date: 20230118
  Receipt Date: 20230118
  Transmission Date: 20230418
  Serious: Yes (Hospitalization, Other)
  Sender: FDA-Public Use
  Company Number: US-UCBSA-2023001890

PATIENT
  Sex: Female

DRUGS (1)
  1. BRIVARACETAM [Suspect]
     Active Substance: BRIVARACETAM
     Indication: Seizure
     Dosage: 25 MILLIGRAM, 1 TABLET, 2X/DAY (BID)

REACTIONS (3)
  - Cerebral haemorrhage [Not Recovered/Not Resolved]
  - Loss of consciousness [Unknown]
  - Head injury [Not Recovered/Not Resolved]
